FAERS Safety Report 8208439-3 (Version None)
Quarter: 2012Q1

REPORT INFORMATION
  Report Type: 
  Country: None (occurrence: None)
  Receive Date: 20120314
  Receipt Date: 20120312
  Transmission Date: 20120608
  Serious: Yes (Other)
  Sender: FDA-Public Use
  Company Number: US-GLAXOSMITHKLINE-A0969531A

PATIENT
  Age: 56 Year
  Sex: Female
  Weight: 54 kg

DRUGS (1)
  1. NICOTINE [Suspect]
     Indication: SMOKING CESSATION THERAPY
     Route: 062
     Dates: start: 20120305, end: 20120309

REACTIONS (2)
  - CONTUSION [None]
  - THROMBOSIS [None]
